FAERS Safety Report 15636051 (Version 2)
Quarter: 2019Q1

REPORT INFORMATION
  Report Type: Spontaneous
  Country: GB (occurrence: GB)
  Receive Date: 20181120
  Receipt Date: 20190313
  Transmission Date: 20190417
  Serious: Yes (Other)
  Sender: FDA-Public Use
  Company Number: GB-AUROBINDO-AUR-APL-2018-055706

PATIENT

DRUGS (2)
  1. MEROPENEM. [Suspect]
     Active Substance: MEROPENEM
     Indication: SINUSITIS BACTERIAL
     Dosage: UNK
     Route: 065
  2. AMBISOME [Suspect]
     Active Substance: AMPHOTERICIN B
     Indication: PRODUCT USED FOR UNKNOWN INDICATION
     Dosage: 5 MILLIGRAM/KILOGRAM, ONCE A DAY
     Route: 065

REACTIONS (6)
  - Malaise [Unknown]
  - Condition aggravated [Unknown]
  - C-reactive protein increased [Unknown]
  - Pancytopenia [Unknown]
  - Swelling face [Unknown]
  - Pain [Unknown]
